FAERS Safety Report 6294371-1 (Version None)
Quarter: 2009Q3

REPORT INFORMATION
  Report Type: 
  Country: None (occurrence: None)
  Receive Date: 20090730
  Receipt Date: 20090724
  Transmission Date: 20100115
  Serious: Yes (Hospitalization)
  Sender: FDA-Public Use
  Company Number: 1000007738

PATIENT
  Age: 54 Year
  Sex: Female

DRUGS (5)
  1. SAVELLA [Suspect]
     Indication: FIBROMYALGIA
     Dosage: 12.5 MG (12.5 MG, 1 IN 1 D), ORAL; TITRATED TO 50 QAM; 12.5 QPM,ORAL
     Route: 048
     Dates: start: 20090701, end: 20090701
  2. WELLBUTRIN SR [Concomitant]
  3. DARVOCET [Concomitant]
  4. XANAX [Concomitant]
  5. ZOMIG [Concomitant]

REACTIONS (6)
  - ACUTE CORONARY SYNDROME [None]
  - BLOOD CHOLESTEROL INCREASED [None]
  - LIPIDS ABNORMAL [None]
  - MYOCARDIAL INFARCTION [None]
  - NAUSEA [None]
  - VISION BLURRED [None]
